FAERS Safety Report 5788466-6 (Version None)
Quarter: 2008Q2

REPORT INFORMATION
  Report Type: 
  Country: None (occurrence: None)
  Receive Date: 20080623
  Receipt Date: 20080606
  Transmission Date: 20081010
  Serious: Yes (Hospitalization)
  Sender: FDA-Public Use
  Company Number: 2008AL005067

PATIENT
  Age: 64 Year
  Sex: Female
  Weight: 65.7716 kg

DRUGS (4)
  1. DIGOXIN [Suspect]
     Indication: ATRIAL FIBRILLATION
     Dosage: 0.25 MG, DAILY, PO
     Route: 048
     Dates: start: 20030101, end: 20080509
  2. LIPITOR [Concomitant]
  3. CARDIZEM [Concomitant]
  4. LOTENSIN [Concomitant]

REACTIONS (4)
  - ATRIAL FIBRILLATION [None]
  - DISEASE RECURRENCE [None]
  - DYSPNOEA [None]
  - HEART RATE IRREGULAR [None]
